FAERS Safety Report 12914406 (Version 2)
Quarter: 2016Q4

REPORT INFORMATION
  Report Type: Report from Study
  Country: JP (occurrence: JP)
  Receive Date: 20161106
  Receipt Date: 20161128
  Transmission Date: 20170207
  Serious: Yes (Life-Threatening)
  Sender: FDA-Public Use
  Company Number: JP-ASTRAZENECA-2016SF15937

PATIENT
  Age: 7139 Day
  Sex: Male

DRUGS (22)
  1. MEROPEN [Suspect]
     Active Substance: MEROPENEM
     Indication: MENINGITIS BACTERIAL
     Route: 041
     Dates: start: 20150825, end: 20150825
  2. ONEALFA [Concomitant]
     Active Substance: ALFACALCIDOL
     Route: 048
  3. PREDONINE [Concomitant]
     Active Substance: PREDNISOLONE\PREDNISOLONE ACETATE\PREDNISOLONE SODIUM SUCCINATE
     Route: 048
     Dates: end: 20150802
  4. PREDONINE [Concomitant]
     Active Substance: PREDNISOLONE\PREDNISOLONE ACETATE\PREDNISOLONE SODIUM SUCCINATE
     Route: 048
     Dates: start: 20150805
  5. VANCOMYCIN HYDROCHLORIDE. [Concomitant]
     Active Substance: VANCOMYCIN HYDROCHLORIDE
     Route: 041
     Dates: start: 20150807, end: 20150810
  6. MEROPEN [Suspect]
     Active Substance: MEROPENEM
     Indication: MENINGITIS BACTERIAL
     Route: 041
     Dates: start: 20150804, end: 20150824
  7. CEREGASRON [Concomitant]
     Active Substance: IRSOGLADINE MALEATE
     Route: 048
  8. PRODIF [Concomitant]
     Active Substance: FOSFLUCONAZOLE
     Route: 042
     Dates: start: 20150823
  9. ROCEPHIN [Suspect]
     Active Substance: CEFTRIAXONE SODIUM
     Route: 065
     Dates: start: 20150803, end: 20150806
  10. SOLU-MEDROL [Concomitant]
     Active Substance: METHYLPREDNISOLONE SODIUM SUCCINATE
     Dates: start: 20150802, end: 20150804
  11. PRODIF [Concomitant]
     Active Substance: FOSFLUCONAZOLE
     Route: 042
     Dates: start: 20150822
  12. DORMICUM [Concomitant]
     Active Substance: MIDAZOLAM\MIDAZOLAM HYDROCHLORIDE
     Indication: STATUS EPILEPTICUS
     Dates: start: 20150802
  13. PROPOFOL. [Concomitant]
     Active Substance: PROPOFOL
     Indication: STATUS EPILEPTICUS
  14. MEROPEN [Suspect]
     Active Substance: MEROPENEM
     Indication: MENINGITIS BACTERIAL
     Route: 041
     Dates: start: 20150803, end: 20150803
  15. LEXIN [Concomitant]
     Active Substance: CEPHALEXIN
     Route: 048
  16. MYSTAN [Concomitant]
     Active Substance: CLOBAZAM
     Route: 048
  17. BAKTAR [Concomitant]
     Active Substance: SULFAMETHOXAZOLE\TRIMETHOPRIM
     Route: 048
  18. VENOGLOBULIN [Concomitant]
     Active Substance: HUMAN IMMUNOGLOBULIN G
     Dates: start: 20150812, end: 20150816
  19. E KEPPRA [Concomitant]
     Active Substance: LEVETIRACETAM
     Route: 048
  20. ALBUMINAR [Concomitant]
     Active Substance: ALBUMIN HUMAN
     Dates: start: 20150820, end: 20150822
  21. RECOMODULIN [Concomitant]
     Active Substance: THROMBOMODULIN ALFA
     Route: 041
     Dates: start: 20150823
  22. LANSOPRAZOLE OD [Concomitant]
     Active Substance: LANSOPRAZOLE
     Route: 048

REACTIONS (2)
  - Candida sepsis [Not Recovered/Not Resolved]
  - Disseminated intravascular coagulation [Not Recovered/Not Resolved]

NARRATIVE: CASE EVENT DATE: 20150823
